FAERS Safety Report 17482847 (Version 1)
Quarter: 2020Q1

REPORT INFORMATION
  Report Type: Spontaneous
  Country: US (occurrence: US)
  Receive Date: 20191028
  Receipt Date: 20191028
  Transmission Date: 20200409
  Serious: No
  Sender: FDA-Public Use
  Company Number: None

PATIENT
  Age: 21 Year
  Sex: Male

DRUGS (4)
  1. THC VAPE [Suspect]
     Active Substance: .DELTA.8-TETRAHYDROCANNABINOL\DEVICE\HERBALS
  2. FLONASE [Concomitant]
     Active Substance: FLUTICASONE PROPIONATE
  3. BIOTIN [Concomitant]
     Active Substance: BIOTIN
  4. MULTIVITAMIN [Concomitant]
     Active Substance: VITAMINS

REACTIONS (4)
  - Cough [None]
  - Dyspnoea [None]
  - Chest pain [None]
  - Pyrexia [None]

NARRATIVE: CASE EVENT DATE: 20190912
